FAERS Safety Report 8423776-5 (Version None)
Quarter: 2012Q2

REPORT INFORMATION
  Report Type: 
  Country: None (occurrence: None)
  Receive Date: 20120608
  Receipt Date: 20120530
  Transmission Date: 20120825
  Serious: No
  Sender: FDA-Public Use
  Company Number: US-ASTRAZENECA-2012SE35570

PATIENT
  Age: 75 Year
  Sex: Female

DRUGS (1)
  1. CAPRELSA [Suspect]
     Indication: THYROID CANCER
     Route: 048

REACTIONS (3)
  - DIARRHOEA [None]
  - DERMATITIS ACNEIFORM [None]
  - MUSCULOSKELETAL PAIN [None]
